FAERS Safety Report 9781560 (Version 1)
Quarter: 2013Q4

REPORT INFORMATION
  Report Type: Spontaneous
  Country: US (occurrence: None)
  Receive Date: 20131223
  Receipt Date: 20131223
  Transmission Date: 20140711
  Serious: Yes (Hospitalization)
  Sender: FDA-Public Use
  Company Number: None

PATIENT
  Age: 57 Year
  Sex: Female
  Weight: 52.3 kg

DRUGS (1)
  1. DIPHENHYDRAMINE [Suspect]
     Dates: start: 20131105

REACTIONS (1)
  - Suicide attempt [None]
